FAERS Safety Report 4513276-7 (Version None)
Quarter: 2004Q4

REPORT INFORMATION
  Report Type: 
  Country: None (occurrence: None)
  Receive Date: 20041130
  Receipt Date: 20041109
  Transmission Date: 20050328
  Serious: Yes (Hospitalization)
  Sender: FDA-Public Use
  Company Number: US-MERCK-0411USA03438

PATIENT
  Sex: Male

DRUGS (2)
  1. VIOXX [Suspect]
     Indication: ARTHRITIS
     Route: 048
     Dates: start: 20000115
  2. VIOXX [Suspect]
     Route: 048
     Dates: end: 20040930

REACTIONS (7)
  - ASTHENIA [None]
  - CEREBRAL HAEMORRHAGE [None]
  - CHEST PAIN [None]
  - DYSPNOEA [None]
  - HYPERHIDROSIS [None]
  - PAIN [None]
  - RESPIRATORY DISORDER [None]
